FAERS Safety Report 6024171-9 (Version None)
Quarter: 2009Q1

REPORT INFORMATION
  Report Type: 
  Country: None (occurrence: None)
  Receive Date: 20081224
  Receipt Date: 20081219
  Transmission Date: 20090719
  Serious: Yes (Hospitalization)
  Sender: FDA-Public Use
  Company Number: LTI2008A00333

PATIENT
  Age: 44 Year
  Sex: Female

DRUGS (4)
  1. LANSOPRAZOLE [Suspect]
     Dosage: 15 MG (15 MG, 1 IN 1 D) ORAL
     Route: 048
     Dates: end: 20081101
  2. NEURONTIN [Suspect]
     Dosage: ORAL
     Route: 048
     Dates: end: 20081101
  3. MIZOLLEN (MIZOLASTINE) [Suspect]
     Dosage: 10 MG (10 MG, 1 IN 1 D) ORAL
     Route: 048
     Dates: end: 20080101
  4. IRBESARTAN [Suspect]
     Dosage: 1 DF (1 DF, 1 IN 1 D) ORAL
     Route: 048

REACTIONS (1)
  - SKIN HYPERPIGMENTATION [None]
